FAERS Safety Report 18301280 (Version 1)
Quarter: 2020Q3

REPORT INFORMATION
  Report Type: Spontaneous
  Country: US (occurrence: US)
  Receive Date: 20200923
  Receipt Date: 20200923
  Transmission Date: 20201103
  Serious: No
  Sender: FDA-Public Use
  Company Number: US-RECKITT BENCKISER HEALTHCARE INT LIMITED-RB-84065-2020

PATIENT
  Age: 76 Year
  Sex: Female

DRUGS (1)
  1. MUCINEX MAXIMUM STRENGTH [Suspect]
     Active Substance: GUAIFENESIN
     Indication: PRODUCT USED FOR UNKNOWN INDICATION
     Dosage: TOOK 1200 MG EVERY FOUR HOURS, TOOK TOTAL OF 10 TABLETS IN THREE DAYS
     Dates: start: 20200211, end: 20200213

REACTIONS (1)
  - Accidental overdose [Recovered/Resolved]
